FAERS Safety Report 5131617-7 (Version None)
Quarter: 2006Q4

REPORT INFORMATION
  Report Type: 
  Country: None (occurrence: None)
  Receive Date: 20061020
  Receipt Date: 20061005
  Transmission Date: 20070319
  Serious: Yes (Other)
  Sender: FDA-Public Use
  Company Number: JP-BRISTOL-MYERS SQUIBB COMPANY-13533153

PATIENT
  Age: 41 Year
  Sex: Male

DRUGS (8)
  1. TAXOL [Suspect]
     Indication: NON-SMALL CELL LUNG CANCER
     Route: 041
     Dates: start: 20060904, end: 20060928
  2. PARAPLATIN [Suspect]
     Indication: NON-SMALL CELL LUNG CANCER
     Route: 041
     Dates: start: 20060904, end: 20060928
  3. SORAFENIB [Suspect]
     Indication: NON-SMALL CELL LUNG CANCER
     Route: 048
     Dates: start: 20060929, end: 20060929
  4. DECADRON [Concomitant]
     Route: 041
     Dates: start: 20060904, end: 20060928
  5. RESTAMIN [Concomitant]
     Route: 048
     Dates: start: 20060904, end: 20060928
  6. ZANTAC [Concomitant]
     Route: 041
     Dates: start: 20060904, end: 20060928
  7. KYTRIL [Concomitant]
     Route: 041
     Dates: start: 20060904, end: 20060928
  8. VOLTAREN [Concomitant]
     Route: 054
     Dates: start: 20060929, end: 20060930

REACTIONS (1)
  - GASTROINTESTINAL PERFORATION [None]
